FAERS Safety Report 6069628-X (Version None)
Quarter: 2009Q1

REPORT INFORMATION
  Report Type: 
  Country: None (occurrence: None)
  Receive Date: 20090209
  Receipt Date: 20090202
  Transmission Date: 20090719
  Serious: Yes (Hospitalization)
  Sender: FDA-Public Use
  Company Number: FR-JNJFOC-20081200806

PATIENT
  Sex: Female

DRUGS (5)
  1. HALDOL [Suspect]
     Indication: DRUG USE FOR UNKNOWN INDICATION
     Route: 048
  2. SOTALOL [Concomitant]
     Indication: HYPERTENSION
     Route: 048
  3. TAREG [Concomitant]
     Indication: HYPERTENSION
     Route: 048
  4. TRIATEC [Concomitant]
     Indication: HYPERTENSION
     Route: 048
  5. TANAKAN [Concomitant]

REACTIONS (7)
  - CONFUSIONAL STATE [None]
  - DISORIENTATION [None]
  - HYPERGLYCAEMIA [None]
  - HYPOCHLORAEMIA [None]
  - HYPONATRAEMIA [None]
  - LOGORRHOEA [None]
  - MEMORY IMPAIRMENT [None]
